FAERS Safety Report 4425603-X (Version None)
Quarter: 2004Q3

REPORT INFORMATION
  Report Type: 
  Country: None (occurrence: None)
  Receive Date: 20040719
  Receipt Date: 20030919
  Transmission Date: 20050211
  Serious: Yes (Hospitalization)
  Sender: FDA-Public Use
  Company Number: 180672

PATIENT
  Age: 33 Year
  Sex: Female
  Weight: 81.1939 kg

DRUGS (7)
  1. AVONEX [Suspect]
     Indication: MULTIPLE SCLEROSIS
     Dosage: 30 MCG QW IM
     Route: 030
     Dates: start: 20010101, end: 20021101
  2. AVONEX [Suspect]
     Indication: MULTIPLE SCLEROSIS
     Dosage: 30 MCG QW IM
     Route: 030
     Dates: start: 20030701
  3. XANAX [Concomitant]
  4. LORTAB [Concomitant]
  5. CLARINEX [Concomitant]
  6. MIDRIN [Concomitant]
  7. NEXIUM [Concomitant]

REACTIONS (2)
  - ANXIETY [None]
  - MULTIPLE SCLEROSIS RELAPSE [None]
